FAERS Safety Report 5049401-1 (Version None)
Quarter: 2006Q2

REPORT INFORMATION
  Report Type: 
  Country: None (occurrence: None)
  Receive Date: 20060613
  Receipt Date: 20060227
  Transmission Date: 20061013
  Serious: No
  Sender: FDA-Public Use
  Company Number: 2006-00452

PATIENT
  Age: 68 Year
  Sex: Male
  Weight: 99.8 kg

DRUGS (8)
  1. VELCADE [Suspect]
     Indication: MULTIPLE MYELOMA
     Route: 065
     Dates: start: 20050726, end: 20050927
  2. LASIX [Concomitant]
  3. POTASSIUM CHLORIDE [Concomitant]
  4. CONCOMITANT MEDICAL PRODUCTS [Concomitant]
  5. VITAMIN B1 TAB [Concomitant]
  6. VITAMIN B6 [Concomitant]
  7. VITAMIN B 12 (CYAMCOBALAMIN) [Concomitant]
  8. MULTIVITAMINS, COMBINATIONS [Concomitant]

REACTIONS (2)
  - DIARRHOEA [None]
  - NEUROPATHY PERIPHERAL [None]
